FAERS Safety Report 21886836 (Version 1)
Quarter: 2023Q1

REPORT INFORMATION
  Report Type: Report from Study
  Country: US (occurrence: US)
  Receive Date: 20230119
  Receipt Date: 20230119
  Transmission Date: 20230417
  Serious: No
  Sender: FDA-Public Use
  Company Number: US-ABBVIE-4272763

PATIENT
  Sex: Male

DRUGS (3)
  1. HUMIRA [Suspect]
     Active Substance: ADALIMUMAB
     Indication: Hidradenitis
     Route: 058
     Dates: start: 20190220
  2. HUMIRA [Suspect]
     Active Substance: ADALIMUMAB
     Route: 058
  3. FENTANYL [Concomitant]
     Active Substance: FENTANYL
     Indication: Pain management
     Route: 065

REACTIONS (3)
  - Obesity [Unknown]
  - Hidradenitis [Not Recovered/Not Resolved]
  - Intentional product misuse [Unknown]
